FAERS Safety Report 18450713 (Version 1)
Quarter: 2020Q4

REPORT INFORMATION
  Report Type: Report from Study
  Country: GB (occurrence: GB)
  Receive Date: 20201030
  Receipt Date: 20201030
  Transmission Date: 20210114
  Serious: Yes (Hospitalization, Other)
  Sender: FDA-Public Use
  Company Number: GB-LARKEN LABORATORIES, INC.-2093466

PATIENT
  Age: 30 Year
  Sex: Male
  Weight: 77.27 kg

DRUGS (1)
  1. ACETAMINOPHEN-CAFFEINE-DIHYDROCODEINE TABLET [Suspect]
     Active Substance: ACETAMINOPHEN\CAFFEINE\DIHYDROCODEINE BITARTRATE
     Indication: ANALGESIC THERAPY
     Route: 048

REACTIONS (5)
  - Hyperreflexia [Recovered/Resolved]
  - Clonus [Recovered/Resolved]
  - Akathisia [Recovered/Resolved]
  - Restlessness [Recovered/Resolved]
  - Tympanic membrane perforation [Recovered/Resolved]
